FAERS Safety Report 8999999 (Version 4)
Quarter: 2013Q1

REPORT INFORMATION
  Report Type: Spontaneous
  Country: JP (occurrence: JP)
  Receive Date: 20130102
  Receipt Date: 20130329
  Transmission Date: 20140127
  Serious: Yes (Death)
  Sender: FDA-Public Use
  Company Number: JP-SANOFI-AVENTIS-2012SA093968

PATIENT
  Age: 69 Year
  Sex: Male
  Weight: 38 kg

DRUGS (3)
  1. TAXOTERE [Suspect]
     Indication: LEIOMYOSARCOMA RECURRENT
     Route: 042
     Dates: start: 20120726, end: 20120927
  2. GEMZAR [Suspect]
     Indication: LEIOMYOSARCOMA RECURRENT
     Dosage: FREQ.: TWICE EVERY 3 WEEKS
     Route: 065
     Dates: start: 20120726, end: 20120927
  3. DEXART [Concomitant]

REACTIONS (5)
  - Interstitial lung disease [Fatal]
  - Dyspnoea [Fatal]
  - Off label use [Unknown]
  - Febrile neutropenia [Recovered/Resolved]
  - Pyrexia [Recovered/Resolved]
